FAERS Safety Report 10450995 (Version 1)
Quarter: 2014Q3

REPORT INFORMATION
  Report Type: Spontaneous
  Country: FR (occurrence: FR)
  Receive Date: 20140912
  Receipt Date: 20140912
  Transmission Date: 20150326
  Serious: Yes (Life-Threatening, Other)
  Sender: FDA-Public Use
  Company Number: FR-PFIZER INC-2014251801

PATIENT
  Age: 60 Year
  Sex: Male

DRUGS (19)
  1. PAROXETINE [Suspect]
     Active Substance: PAROXETINE\PAROXETINE HYDROCHLORIDE
     Indication: DEPRESSION
     Route: 048
  2. MIRCERA [Concomitant]
     Active Substance: PEGZEREPOETIN ALFA
     Dosage: 50 UG, MONTHLY
     Dates: start: 20140811
  3. XANAX [Concomitant]
     Active Substance: ALPRAZOLAM
  4. PROGRAF [Suspect]
     Active Substance: TACROLIMUS\TACROLIMUS ANHYDROUS
     Dosage: 7 DF, UNK
     Route: 048
     Dates: end: 20130811
  5. AMLOR [Suspect]
     Active Substance: AMLODIPINE BESYLATE
     Indication: HYPERTENSION
     Route: 048
  6. SERESTA [Suspect]
     Active Substance: OXAZEPAM
     Indication: ANXIETY
     Route: 048
  7. PAROXETINE [Suspect]
     Active Substance: PAROXETINE\PAROXETINE HYDROCHLORIDE
     Dosage: 60 DF, UNK
     Route: 048
  8. CELLCEPT [Suspect]
     Active Substance: MYCOPHENOLATE MOFETIL\MYCOPHENOLATE MOFETIL HYDROCHLORIDE
     Indication: ORGAN TRANSPLANT
     Dosage: UNK
     Route: 048
  9. ROVALCYTE [Concomitant]
     Active Substance: VALGANCICLOVIR HYDROCHLORIDE
  10. XATRAL [Concomitant]
     Active Substance: ALFUZOSIN
  11. CELLCEPT [Suspect]
     Active Substance: MYCOPHENOLATE MOFETIL\MYCOPHENOLATE MOFETIL HYDROCHLORIDE
     Dosage: 14 TABLETS
     Route: 048
  12. SEROPLEX [Concomitant]
     Active Substance: ESCITALOPRAM OXALATE
  13. MIRCERA [Concomitant]
     Active Substance: PEGZEREPOETIN ALFA
     Dosage: UNK
     Dates: end: 2014
  14. AMLOR [Suspect]
     Active Substance: AMLODIPINE BESYLATE
     Dosage: 107 DF, SINGLE
     Route: 048
  15. TIAPRIDE [Suspect]
     Active Substance: TIAPRIDE
     Dosage: 40 DF, UNK
     Route: 048
  16. TIAPRIDE [Suspect]
     Active Substance: TIAPRIDE
     Indication: ABNORMAL BEHAVIOUR
     Route: 048
  17. SERESTA [Suspect]
     Active Substance: OXAZEPAM
     Dosage: 106 DF, UNK
     Route: 048
  18. PROGRAF [Suspect]
     Active Substance: TACROLIMUS\TACROLIMUS ANHYDROUS
     Indication: ORGAN TRANSPLANT
     Route: 048
  19. INEXIUM /01479302/ [Concomitant]
     Active Substance: ESOMEPRAZOLE MAGNESIUM

REACTIONS (5)
  - Intentional overdose [Unknown]
  - Vasoplegia syndrome [Recovering/Resolving]
  - Shock [Recovering/Resolving]
  - Drug withdrawal syndrome [Unknown]
  - Suicide attempt [Unknown]

NARRATIVE: CASE EVENT DATE: 20140801
